FAERS Safety Report 5096015-3 (Version None)
Quarter: 2006Q3

REPORT INFORMATION
  Report Type: 
  Country: None (occurrence: None)
  Receive Date: 20060905
  Receipt Date: 20060829
  Transmission Date: 20061208
  Serious: Yes (Life-Threatening, Hospitalization)
  Sender: FDA-Public Use
  Company Number: JP-JPN-A200603411

PATIENT
  Age: 64 Year
  Sex: Male

DRUGS (6)
  1. FLOLAN [Suspect]
     Indication: PULMONARY ARTERIAL PRESSURE INCREASED
     Route: 042
     Dates: start: 20060728, end: 20060828
  2. BIOFERMIN [Concomitant]
     Route: 048
  3. MINOCYCLINE HCL [Concomitant]
     Route: 065
  4. DAI-KENCHU-TO [Concomitant]
     Route: 048
  5. HEPARIN [Concomitant]
     Route: 065
  6. MARZULENE S [Concomitant]
     Route: 048

REACTIONS (1)
  - TOXIC EPIDERMAL NECROLYSIS [None]
